FAERS Safety Report 14991850 (Version 2)
Quarter: 2018Q3

REPORT INFORMATION
  Report Type: Report from Study
  Country: AR (occurrence: AR)
  Receive Date: 20180608
  Receipt Date: 20180904
  Transmission Date: 20181010
  Serious: Yes (Other)
  Sender: FDA-Public Use
  Company Number: PHHY2018AR006250

PATIENT
  Age: 38 Year
  Sex: Female
  Weight: 87 kg

DRUGS (3)
  1. SANDOSTATIN LAR DEPOT [Suspect]
     Active Substance: OCTREOTIDE ACETATE
     Indication: ACROMEGALY
     Dosage: 30 MG, QMO
     Route: 065
     Dates: start: 20111001, end: 20171028
  2. ASPIRIN. [Concomitant]
     Active Substance: ASPIRIN
     Indication: PRODUCT USED FOR UNKNOWN INDICATION
     Dosage: UNK, QD
     Route: 048
  3. IRON [Concomitant]
     Active Substance: IRON
     Indication: PRODUCT USED FOR UNKNOWN INDICATION
     Route: 048

REACTIONS (5)
  - Normal newborn [Unknown]
  - Urinary tract infection [Recovered/Resolved]
  - Maternal exposure before pregnancy [Unknown]
  - Insulin-like growth factor decreased [Unknown]
  - Placenta praevia [Recovered/Resolved]

NARRATIVE: CASE EVENT DATE: 20171128
